FAERS Safety Report 21229185 (Version 1)
Quarter: 2022Q3

REPORT INFORMATION
  Report Type: Report from Study
  Country: BR (occurrence: BR)
  Receive Date: 20220818
  Receipt Date: 20220818
  Transmission Date: 20221027
  Serious: Yes (Other)
  Sender: FDA-Public Use
  Company Number: BR-ABBVIE-22K-020-4494213-00

PATIENT
  Age: 64 Year
  Sex: Female
  Weight: 70 kg

DRUGS (3)
  1. SKYRIZI [Suspect]
     Active Substance: RISANKIZUMAB-RZAA
     Indication: Psoriasis
     Dosage: WEEK 0
     Route: 058
     Dates: start: 20210618, end: 20210618
  2. SKYRIZI [Suspect]
     Active Substance: RISANKIZUMAB-RZAA
     Dosage: WEEK 4
     Route: 058
  3. SKYRIZI [Suspect]
     Active Substance: RISANKIZUMAB-RZAA
     Dosage: WEEK 4
     Route: 058

REACTIONS (14)
  - Mobility decreased [Unknown]
  - Accident [Recovering/Resolving]
  - Haemorrhage [Unknown]
  - Limb mass [Not Recovered/Not Resolved]
  - Drug ineffective [Unknown]
  - Blood glucose abnormal [Recovered/Resolved]
  - Unevaluable event [Recovered/Resolved]
  - Cerebral haematoma [Recovering/Resolving]
  - Haematoma [Recovering/Resolving]
  - Headache [Recovering/Resolving]
  - Neuralgia [Not Recovered/Not Resolved]
  - Chest pain [Recovered/Resolved]
  - Fatigue [Recovered/Resolved]
  - Arthralgia [Not Recovered/Not Resolved]

NARRATIVE: CASE EVENT DATE: 20220701
